FAERS Safety Report 20687340 (Version 1)
Quarter: 2022Q2

REPORT INFORMATION
  Report Type: Spontaneous
  Country: CA (occurrence: CA)
  Receive Date: 20220408
  Receipt Date: 20220408
  Transmission Date: 20220721
  Serious: Yes (Hospitalization, Other)
  Sender: FDA-Public Use
  Company Number: CA-ALVOGEN-2022-ALVOGEN-119444

PATIENT
  Age: 60 Year
  Sex: Female

DRUGS (6)
  1. ATENOLOL [Suspect]
     Active Substance: ATENOLOL
     Indication: Product used for unknown indication
     Route: 065
  2. PANTOPRAZOLE SODIUM [Suspect]
     Active Substance: PANTOPRAZOLE SODIUM
     Indication: Gastritis
     Route: 048
  3. SANDOSTATIN [Suspect]
     Active Substance: OCTREOTIDE ACETATE
     Indication: Carcinoid tumour
     Route: 030
  4. SANDOSTATIN [Suspect]
     Active Substance: OCTREOTIDE ACETATE
     Indication: Carcinoid tumour
     Route: 058
  5. MICARDIS [Concomitant]
     Active Substance: TELMISARTAN
     Indication: Blood pressure measurement
  6. NICODERM CQ [Concomitant]
     Active Substance: NICOTINE
     Indication: Product used for unknown indication

REACTIONS (11)
  - Blood pressure increased [Unknown]
  - Blood pressure systolic increased [Unknown]
  - Carcinoid tumour [Unknown]
  - Cardiac disorder [Unknown]
  - Facial bones fracture [Unknown]
  - Fall [Unknown]
  - Malignant neoplasm progression [Unknown]
  - Headache [Unknown]
  - Nausea [Unknown]
  - Syncope [Unknown]
  - Blood pressure decreased [Unknown]
